FAERS Safety Report 8554210-2 (Version None)
Quarter: 2012Q3

REPORT INFORMATION
  Report Type: 
  Country: None (occurrence: None)
  Receive Date: 20120731
  Receipt Date: 20120718
  Transmission Date: 20120928
  Serious: Yes (Hospitalization)
  Sender: FDA-Public Use
  Company Number: JP-ELI_LILLY_AND_COMPANY-JP201207006190

PATIENT
  Age: 85 Year
  Sex: Female

DRUGS (9)
  1. OMEPRAZOLE [Concomitant]
     Dosage: 20 MG, EACH MORNING
  2. OXYCODONE HCL [Concomitant]
     Dosage: 5 MG, BID
     Route: 048
  3. OXYCODONE HCL [Concomitant]
     Dosage: 10 MG, BID
     Route: 048
  4. LOXOPROFEN [Concomitant]
     Dosage: 60 MG, TID
     Route: 048
  5. MAGNESIUM OXIDE [Concomitant]
     Dosage: 330 MG, TID
  6. GEMCITABINE HYDROCHLORIDE [Suspect]
     Indication: PANCREATIC CARCINOMA
     Dosage: 1200 MG, OTHER
     Route: 042
  7. ZYPREXA [Suspect]
     Indication: NAUSEA
     Dosage: 2.5 MG, QD
     Route: 048
  8. PROCHLORPERAZINE [Concomitant]
     Dosage: 5 MG, BID
     Route: 048
  9. OXYCODONE HCL [Concomitant]
     Indication: PAIN
     Dosage: 2.5 MG, PRN
     Route: 048

REACTIONS (6)
  - ABDOMINAL PAIN [None]
  - OFF LABEL USE [None]
  - HYPOPHAGIA [None]
  - NAUSEA [None]
  - SOMNOLENCE [None]
  - WHITE BLOOD CELL COUNT DECREASED [None]
